FAERS Safety Report 7069691-3 (Version None)
Quarter: 2010Q4

REPORT INFORMATION
  Report Type: 
  Country: None (occurrence: None)
  Receive Date: 20101028
  Receipt Date: 20100615
  Transmission Date: 20110411
  Serious: No
  Sender: FDA-Public Use
  Company Number: US-WYE-H14999810

PATIENT
  Age: 62 Year
  Sex: Female
  Weight: 90.8 kg

DRUGS (2)
  1. ADVIL [Suspect]
     Indication: PAIN
     Dosage: 2 TABLETS ONCE
     Route: 048
  2. LYRICA [Concomitant]

REACTIONS (1)
  - DRUG INEFFECTIVE [None]
